FAERS Safety Report 9998193 (Version 1)
Quarter: 2014Q1

REPORT INFORMATION
  Report Type: Spontaneous
  Country: US (occurrence: None)
  Receive Date: 20140304
  Receipt Date: 20140304
  Transmission Date: 20141002
  Serious: Yes (Other)
  Sender: FDA-Public Use
  Company Number: RB-53736-2013

PATIENT
  Sex: Male

DRUGS (6)
  1. SUBUTEX (2 MG, 2 MG) [Suspect]
     Indication: DRUG DEPENDENCE
     Route: 064
     Dates: start: 2012, end: 20130109
  2. SUBOXONE 8 MG [Suspect]
     Indication: DRUG DEPENDENCE
     Route: 064
     Dates: start: 2012, end: 2012
  3. SEROQUEL [Suspect]
     Indication: PRODUCT USED FOR UNKNOWN INDICATION
     Route: 064
     Dates: start: 2012
  4. BENADRYL [Suspect]
     Indication: PRODUCT USED FOR UNKNOWN INDICATION
     Dosage: DOSAGE DETAIL UNKNOWN
     Route: 064
  5. NICOTINE [Suspect]
     Dosage: CIGARETTES DAILY
     Route: 064
     Dates: start: 2012
  6. ALCOHOL [Suspect]
     Indication: ALCOHOL USE
     Dosage: NOT OTHERWISE SPECIFIED
     Route: 064
     Dates: start: 2012, end: 201211

REACTIONS (3)
  - Foetal exposure during pregnancy [None]
  - Drug withdrawal syndrome neonatal [None]
  - Exposure during breast feeding [None]
